FAERS Safety Report 15070074 (Version 1)
Quarter: 2018Q2

REPORT INFORMATION
  Report Type: Report from Study
  Country: IN (occurrence: IN)
  Receive Date: 20180626
  Receipt Date: 20180626
  Transmission Date: 20180711
  Serious: Yes (Other)
  Sender: FDA-Public Use
  Company Number: PHHY2018IN029838

PATIENT
  Sex: Male
  Weight: 70 kg

DRUGS (2)
  1. MISOPT [Concomitant]
     Indication: GLAUCOMA
     Dosage: 1 GTT, BID
     Route: 031
  2. TRAVATAN [Suspect]
     Active Substance: TRAVOPROST
     Indication: GLAUCOMA
     Dosage: 1 GTT, QD
     Route: 031

REACTIONS (2)
  - Photophobia [Recovered/Resolved]
  - Diabetes mellitus [Unknown]
